FAERS Safety Report 9715937 (Version 1)
Quarter: 2013Q4

REPORT INFORMATION
  Report Type: Spontaneous
  Country: US (occurrence: US)
  Receive Date: 20131127
  Receipt Date: 20131127
  Transmission Date: 20140711
  Serious: Yes (Other)
  Sender: FDA-Public Use
  Company Number: US-PERRIGO-13US012001

PATIENT
  Age: 56 Year
  Sex: Female

DRUGS (2)
  1. ACETAMINOPHEN 650MG ER 544 [Suspect]
     Indication: PAIN
     Dosage: UNK, UNK
     Route: 065
  2. NORFLOXACIN [Concomitant]
     Indication: URINARY TRACT INFECTION
     Dosage: UNK, UNK
     Route: 065

REACTIONS (5)
  - Metabolic acidosis [Unknown]
  - Pyroglutamate increased [Unknown]
  - Dyspnoea [Unknown]
  - Tachypnoea [Unknown]
  - Cachexia [Unknown]
